FAERS Safety Report 5118631-2 (Version None)
Quarter: 2006Q4

REPORT INFORMATION
  Report Type: 
  Country: None (occurrence: None)
  Receive Date: 20061002
  Receipt Date: 20060919
  Transmission Date: 20070319
  Serious: Yes (Other)
  Sender: FDA-Public Use
  Company Number: ES-GLAXOSMITHKLINE-B0439227A

PATIENT
  Age: 23 Year
  Sex: Female

DRUGS (2)
  1. LAMICTAL [Suspect]
     Indication: EPILEPSY
     Route: 065
     Dates: start: 20060721
  2. ORFIDAL [Concomitant]
     Indication: ANXIETY
     Route: 065

REACTIONS (7)
  - DRY SKIN [None]
  - EPILEPSY [None]
  - EXERCISE LACK OF [None]
  - PRURITUS [None]
  - RASH GENERALISED [None]
  - URTICARIA GENERALISED [None]
  - WEIGHT INCREASED [None]
